FAERS Safety Report 6203144-7 (Version None)
Quarter: 2009Q2

REPORT INFORMATION
  Report Type: 
  Country: None (occurrence: None)
  Receive Date: 20090526
  Receipt Date: 20090526
  Transmission Date: 20091009
  Serious: No
  Sender: FDA-Public Use
  Company Number: None

PATIENT
  Age: 25 Year
  Sex: Male

DRUGS (1)
  1. ADDERALL XR 30 [Suspect]
     Indication: ATTENTION DEFICIT/HYPERACTIVITY DISORDER
     Dosage: 30 CAPSULES DAILY BUCCAL
     Route: 002
     Dates: start: 20090413, end: 20090421

REACTIONS (3)
  - DRUG DISPENSING ERROR [None]
  - FATIGUE [None]
  - WRONG DRUG ADMINISTERED [None]
